FAERS Safety Report 8589717 (Version 4)
Quarter: 2013Q1

REPORT INFORMATION
  Report Type: Spontaneous
  Country: US (occurrence: US)
  Receive Date: 20120601
  Receipt Date: 20130329
  Transmission Date: 20140127
  Serious: Yes (Hospitalization)
  Sender: FDA-Public Use
  Company Number: US-BIOGENIDEC-2012BI018607

PATIENT
  Age: 52 Year
  Sex: Female

DRUGS (4)
  1. TYSABRI [Suspect]
     Indication: MULTIPLE SCLEROSIS
     Route: 042
     Dates: start: 20101212
  2. PERCOCET [Concomitant]
     Indication: PAIN
  3. NEURONTIN [Concomitant]
     Indication: PAIN
  4. MIDRIN [Concomitant]
     Indication: HEADACHE

REACTIONS (7)
  - Hypertension [Unknown]
  - Vomiting [Unknown]
  - Neuralgia [Unknown]
  - Back pain [Not Recovered/Not Resolved]
  - Neck pain [Not Recovered/Not Resolved]
  - Neck surgery [Recovered/Resolved]
  - Migraine [Not Recovered/Not Resolved]
